FAERS Safety Report 10180206 (Version 1)
Quarter: 2014Q2

REPORT INFORMATION
  Report Type: Spontaneous
  Country: US (occurrence: US)
  Receive Date: 20140519
  Receipt Date: 20140519
  Transmission Date: 20141212
  Serious: No
  Sender: FDA-Public Use
  Company Number: US-AMGEN INC.-USASP2013086007

PATIENT
  Age: 82 Year
  Sex: Female
  Weight: 50.34 kg

DRUGS (1)
  1. PROLIA [Suspect]
     Indication: OSTEOPOROSIS POSTMENOPAUSAL
     Dosage: 60 MG/ML, Q6MO
     Route: 065
     Dates: start: 20131113

REACTIONS (2)
  - Dyspepsia [Recovered/Resolved]
  - Sleep disorder due to a general medical condition [Recovered/Resolved]
